FAERS Safety Report 5152951-0 (Version None)
Quarter: 2006Q4

REPORT INFORMATION
  Report Type: 
  Country: None (occurrence: None)
  Receive Date: 20061114
  Receipt Date: 20061114
  Transmission Date: 20070319
  Serious: Yes (Life-Threatening)
  Sender: FDA-Public Use
  Company Number: None

PATIENT
  Age: 85 Year
  Sex: Female
  Weight: 66 kg

DRUGS (8)
  1. LEVOFLOXACIN [Suspect]
     Indication: BRONCHITIS
     Dosage: 500 MG DAILY AT BEDTIME PO
     Route: 048
     Dates: start: 20061009, end: 20061015
  2. LEVOFLOXACIN [Suspect]
     Indication: PNEUMONIA
     Dosage: 500 MG DAILY AT BEDTIME PO
     Route: 048
     Dates: start: 20061009, end: 20061015
  3. ADVAIR DISKUS 100/50 [Concomitant]
  4. ACIPHEX [Concomitant]
  5. COUMADIN [Concomitant]
  6. TRIAMTERENE AND HYDROCHLOROTHIAZIDE [Concomitant]
  7. VERAPAMIL [Concomitant]
  8. NIASPAN [Concomitant]

REACTIONS (13)
  - ASCITES [None]
  - ASTHENIA [None]
  - BILE DUCT STONE [None]
  - BILIARY DILATATION [None]
  - CHRONIC OBSTRUCTIVE PULMONARY DISEASE [None]
  - COAGULOPATHY [None]
  - DEHYDRATION [None]
  - FALL [None]
  - HEPATIC NECROSIS [None]
  - HYPERBILIRUBINAEMIA [None]
  - INFECTION [None]
  - LEUKAEMOID REACTION [None]
  - ORAL INTAKE REDUCED [None]
